FAERS Safety Report 25899267 (Version 1)
Quarter: 2025Q4

REPORT INFORMATION
  Report Type: Spontaneous
  Country: US (occurrence: US)
  Receive Date: 20251009
  Receipt Date: 20251009
  Transmission Date: 20260118
  Serious: No
  Sender: ELI LILLY AND COMPANY
  Company Number: US-ELI_LILLY_AND_COMPANY-US202509029409

PATIENT
  Sex: Female

DRUGS (1)
  1. ZEPBOUND [Suspect]
     Active Substance: TIRZEPATIDE
     Indication: Product used for unknown indication
     Dosage: UNK UNK, UNKNOWN
     Route: 065

REACTIONS (6)
  - Defaecation urgency [Recovered/Resolved]
  - Irritable bowel syndrome [Unknown]
  - Anxiety [Unknown]
  - Frequent bowel movements [Recovered/Resolved]
  - Abdominal discomfort [Unknown]
  - Flatulence [Unknown]
